FAERS Safety Report 20093667 (Version 1)
Quarter: 2021Q4

REPORT INFORMATION
  Report Type: Report from Study
  Country: CO (occurrence: CO)
  Receive Date: 20211121
  Receipt Date: 20211121
  Transmission Date: 20220303
  Serious: Yes (Other)
  Sender: FDA-Public Use
  Company Number: CO-NOVARTISPH-NVSC2021CO223040

PATIENT
  Sex: Male

DRUGS (1)
  1. ELTROMBOPAG OLAMINE [Suspect]
     Active Substance: ELTROMBOPAG OLAMINE
     Indication: Immune thrombocytopenia
     Dosage: UNK
     Route: 048

REACTIONS (7)
  - Haemorrhage [Unknown]
  - Haemoglobin decreased [Unknown]
  - Illness [Unknown]
  - Gingival bleeding [Unknown]
  - Unevaluable event [Unknown]
  - General physical health deterioration [Unknown]
  - Platelet count decreased [Unknown]
